FAERS Safety Report 12939696 (Version 1)
Quarter: 2016Q4

REPORT INFORMATION
  Report Type: Spontaneous
  Country: US (occurrence: US)
  Receive Date: 20161115
  Receipt Date: 20161115
  Transmission Date: 20170207
  Serious: No
  Sender: FDA-Public Use
  Company Number: US-BAYER-2016-217744

PATIENT
  Age: 84 Year
  Sex: Female
  Weight: 59.86 kg

DRUGS (1)
  1. MIRALAX [Suspect]
     Active Substance: POLYETHYLENE GLYCOL 3350
     Indication: GASTROINTESTINAL DISORDER
     Dosage: 1 DF, QD 1 DOSE ONCE DAILY AS NEEDED
     Route: 048
     Dates: start: 2015, end: 20161111

REACTIONS (5)
  - Abdominal distension [Not Recovered/Not Resolved]
  - Drug ineffective [Unknown]
  - Flatulence [Not Recovered/Not Resolved]
  - Discomfort [Not Recovered/Not Resolved]
  - Diarrhoea [Unknown]

NARRATIVE: CASE EVENT DATE: 20161107
